FAERS Safety Report 4976409-4 (Version None)
Quarter: 2006Q2

REPORT INFORMATION
  Report Type: 
  Country: None (occurrence: None)
  Receive Date: 20060419
  Receipt Date: 20060309
  Transmission Date: 20061013
  Serious: Yes (Other)
  Sender: FDA-Public Use
  Company Number: 2006AP01129

PATIENT
  Age: 73 Year
  Sex: Male
  Weight: 34 kg

DRUGS (4)
  1. MEROPEN [Suspect]
     Indication: PNEUMONIA
     Route: 041
     Dates: start: 20051221, end: 20051229
  2. PLETAL [Suspect]
     Indication: ARTERIOSCLEROSIS
     Route: 051
     Dates: start: 20051117, end: 20060120
  3. LANIRAPID [Concomitant]
     Indication: CARDIAC FAILURE CHRONIC
     Route: 051
     Dates: start: 20051117, end: 20060120
  4. HALOSPOR [Concomitant]
     Indication: PNEUMONIA
     Dates: start: 20051116

REACTIONS (4)
  - ALANINE AMINOTRANSFERASE INCREASED [None]
  - ASPARTATE AMINOTRANSFERASE INCREASED [None]
  - HEPATIC FUNCTION ABNORMAL [None]
  - RESPIRATORY DISORDER [None]
